FAERS Safety Report 7763315-5 (Version None)
Quarter: 2011Q3

REPORT INFORMATION
  Report Type: 
  Country: None (occurrence: None)
  Receive Date: 20110920
  Receipt Date: 20110303
  Transmission Date: 20111222
  Serious: No
  Sender: FDA-Public Use
  Company Number: US-BAYER-2011-066039

PATIENT
  Age: 46 Year
  Sex: Female
  Weight: 70 kg

DRUGS (2)
  1. MULTI-VITAMIN [Concomitant]
  2. ALEVE-D SINUS + COLD [Suspect]
     Indication: NASOPHARYNGITIS
     Dosage: 1 TABLET ONCE DAILY - 10 COUNT
     Route: 048
     Dates: start: 20110223, end: 20110223

REACTIONS (2)
  - FATIGUE [None]
  - INSOMNIA [None]
